FAERS Safety Report 9006031 (Version 3)
Quarter: 2013Q1

REPORT INFORMATION
  Report Type: Spontaneous
  Country: US (occurrence: US)
  Receive Date: 20130109
  Receipt Date: 20130124
  Transmission Date: 20140127
  Serious: Yes (Other)
  Sender: FDA-Public Use
  Company Number: CHPA2013US000610

PATIENT
  Age: 87 Year
  Sex: Male

DRUGS (3)
  1. PREVACID 24HR 15MG [Suspect]
     Indication: GASTROOESOPHAGEAL REFLUX DISEASE
     Dosage: 15 MG, 3 TIMES A WEEK
     Route: 048
     Dates: start: 2012
  2. PREVACID 24HR 15MG [Suspect]
     Dosage: UNK, QD
     Route: 048
     Dates: start: 2010
  3. ACETYLSALICYLIC ACID [Suspect]
     Dosage: 81MG, UNK

REACTIONS (7)
  - Bladder disorder [Recovered/Resolved]
  - Haematuria [Recovered/Resolved]
  - Disease recurrence [Recovered/Resolved]
  - Off label use [Unknown]
  - Therapeutic response unexpected [Unknown]
  - Treatment noncompliance [Unknown]
  - Incorrect drug administration duration [Unknown]
